FAERS Safety Report 4286453-0 (Version None)
Quarter: 2004Q1

REPORT INFORMATION
  Report Type: 
  Country: None (occurrence: None)
  Receive Date: 20040204
  Receipt Date: 20040129
  Transmission Date: 20041129
  Serious: Yes (Life-Threatening)
  Sender: FDA-Public Use
  Company Number: 2004196601CH

PATIENT
  Age: 62 Year
  Sex: Female

DRUGS (9)
  1. LUVOX [Suspect]
     Indication: ILL-DEFINED DISORDER
     Dosage: 800 MG, SINGLE, ORAL
     Route: 048
     Dates: start: 20040102, end: 20040102
  2. LITHIUM CARBONATE [Suspect]
     Indication: ILL-DEFINED DISORDER
     Dosage: 4000 MG, SINGLE, ORAL
     Route: 048
     Dates: start: 20040102, end: 20040102
  3. TRAMADOL HCL [Suspect]
     Indication: ILL-DEFINED DISORDER
     Dosage: 4500 MG, SINGLE, ORAL
     Route: 048
     Dates: start: 20040102, end: 20040102
  4. ENTUMIN (CLOTIAPINE) [Suspect]
     Indication: ILL-DEFINED DISORDER
     Dosage: 4000 MG, SINGLE, ORAL
     Route: 048
     Dates: start: 20040102, end: 20040102
  5. PONSTAN (MEFENAMIC ACID0 [Suspect]
     Indication: ILL-DEFINED DISORDER
     Dosage: 18000 MG, SINGLE, ORAL
     Route: 048
     Dates: start: 20040102, end: 20040102
  6. INDERAL [Suspect]
     Indication: ILL-DEFINED DISORDER
     Dosage: 300 MG, SINGLE, ORAL
     Route: 048
     Dates: start: 20040102, end: 20040102
  7. CLORAZEPATE DIPOTASSIUM [Suspect]
     Indication: ILL-DEFINED DISORDER
     Dosage: 250 MG, SINGLE, ORAL
     Route: 048
     Dates: start: 20040102, end: 20040102
  8. DETRUSITOL (TOLTERODINE) TABLET [Suspect]
     Indication: ILL-DEFINED DISORDER
     Dosage: 14 MG, SINGLE, ORAL
     Route: 048
     Dates: start: 20040102, end: 20040102
  9. FLURAZEPAM [Suspect]
     Indication: ILL-DEFINED DISORDER
     Dosage: 1800 MG, SINGLE, ORAL
     Route: 048
     Dates: start: 20040102, end: 20040102

REACTIONS (6)
  - COMA [None]
  - INTENTIONAL OVERDOSE [None]
  - MULTIPLE DRUG OVERDOSE [None]
  - RENAL FAILURE ACUTE [None]
  - SEROTONIN SYNDROME [None]
  - SUICIDE ATTEMPT [None]
